FAERS Safety Report 7372969-7 (Version None)
Quarter: 2011Q1

REPORT INFORMATION
  Report Type: 
  Country: None (occurrence: None)
  Receive Date: 20110324
  Receipt Date: 20110318
  Transmission Date: 20110831
  Serious: Yes (Death)
  Sender: FDA-Public Use
  Company Number: US-ELI_LILLY_AND_COMPANY-US201101002080

PATIENT
  Sex: Male

DRUGS (2)
  1. ZYPREXA [Suspect]
     Indication: BIPOLAR DISORDER
     Dosage: 30 MG, DAILY (1/D)
     Route: 048
     Dates: start: 20100729
  2. DEPAKOTE [Concomitant]

REACTIONS (4)
  - MYOCARDIAL FIBROSIS [None]
  - OVERDOSE [None]
  - COUGH [None]
  - BRONCHITIS [None]
